FAERS Safety Report 6375735-4 (Version None)
Quarter: 2009Q3

REPORT INFORMATION
  Report Type: 
  Country: None (occurrence: None)
  Receive Date: 20090922
  Receipt Date: 20090922
  Transmission Date: 20100115
  Serious: Yes (Life-Threatening)
  Sender: FDA-Public Use
  Company Number: None

PATIENT
  Age: 85 Year
  Sex: Male
  Weight: 69.4003 kg

DRUGS (1)
  1. DAPTOMYCIN [Suspect]
     Indication: POST PROCEDURAL INFECTION
     Dosage: 400 MG Q24 HOURS IV
     Route: 042
     Dates: start: 20090724, end: 20090826

REACTIONS (1)
  - ALVEOLITIS ALLERGIC [None]
